FAERS Safety Report 8847342 (Version 1)
Quarter: 2012Q4

REPORT INFORMATION
  Report Type: Report from Study
  Country: IT (occurrence: IT)
  Receive Date: 20121018
  Receipt Date: 20121018
  Transmission Date: 20130627
  Serious: Yes (Hospitalization)
  Sender: FDA-Public Use
  Company Number: IT-BAXTER-2012BAX019735

PATIENT
  Age: 13 Year
  Sex: Male
  Weight: 43.1 kg

DRUGS (7)
  1. HOLOXAN [Suspect]
     Indication: MALIGNANT NEOPLASM WITHOUT SPECIFICATION OF SITE
     Route: 042
     Dates: start: 20110609
  2. HOLOXAN [Suspect]
     Route: 042
     Dates: start: 20110610
  3. UROMITEXAN [Suspect]
     Indication: MALIGNANT NEOPLASM WITHOUT SPECIFICATION OF SITE
     Route: 042
     Dates: start: 20110609
  4. UROMITEXAN [Suspect]
     Route: 042
     Dates: start: 20110610
  5. VINCRISTINE [Suspect]
     Indication: MALIGNANT NEOPLASM WITHOUT SPECIFICATION OF SITE
     Route: 042
     Dates: start: 20110609
  6. DACTINOMYCIN [Suspect]
     Indication: MALIGNANT NEOPLASM WITHOUT SPECIFICATION OF SITE
     Route: 042
     Dates: start: 20110609
  7. DOXORUBICIN [Suspect]
     Indication: MALIGNANT NEOPLASM WITHOUT SPECIFICATION OF SITE
     Route: 042
     Dates: start: 20110609

REACTIONS (1)
  - Febrile neutropenia [Recovered/Resolved]
